FAERS Safety Report 9646263 (Version 2)
Quarter: 2014Q1

REPORT INFORMATION
  Report Type: Spontaneous
  Country: US (occurrence: US)
  Receive Date: 20131025
  Receipt Date: 20140123
  Transmission Date: 20141002
  Serious: No
  Sender: FDA-Public Use
  Company Number: US-009507513-1310USA011194

PATIENT
  Sex: 0

DRUGS (2)
  1. NEXPLANON [Suspect]
     Dosage: UNK
     Route: 059
  2. NEXPLANON [Suspect]
     Dosage: UNK
     Route: 059

REACTIONS (2)
  - Device deployment issue [Unknown]
  - No adverse event [Unknown]
